FAERS Safety Report 8529333-4 (Version None)
Quarter: 2012Q3

REPORT INFORMATION
  Report Type: 
  Country: None (occurrence: None)
  Receive Date: 20120717
  Receipt Date: 20120717
  Transmission Date: 20120928
  Serious: No
  Sender: FDA-Public Use
  Company Number: None

PATIENT
  Age: 24 Year
  Sex: Female

DRUGS (1)
  1. ACNE FREE FOR SENSITIVE SKIN [Suspect]
     Dates: start: 20120703, end: 20120704

REACTIONS (4)
  - SWELLING FACE [None]
  - DERMATITIS CONTACT [None]
  - LOCAL SWELLING [None]
  - CHEMICAL INJURY [None]
